FAERS Safety Report 12852863 (Version 1)
Quarter: 2016Q4

REPORT INFORMATION
  Report Type: Spontaneous
  Country: US (occurrence: US)
  Receive Date: 20161017
  Receipt Date: 20161017
  Transmission Date: 20170207
  Serious: No
  Sender: FDA-Public Use
  Company Number: US-JAZZ-2016-US-013928

PATIENT
  Sex: Female

DRUGS (25)
  1. ACCOLATE [Concomitant]
     Active Substance: ZAFIRLUKAST
  2. CELEBREX [Concomitant]
     Active Substance: CELECOXIB
  3. PREMARIN [Concomitant]
     Active Substance: ESTROGENS, CONJUGATED
  4. HYDROCHLOROTHIAZIDE. [Concomitant]
     Active Substance: HYDROCHLOROTHIAZIDE
  5. LOSARTAN POTASSIUM. [Concomitant]
     Active Substance: LOSARTAN POTASSIUM
  6. XYREM [Suspect]
     Active Substance: SODIUM OXYBATE
     Dosage: DOSE ADJUSTMENTS
     Route: 048
     Dates: start: 201506, end: 201510
  7. XYREM [Suspect]
     Active Substance: SODIUM OXYBATE
     Dosage: 3.75 G, BID
     Route: 048
     Dates: start: 201510
  8. LORATADINE. [Concomitant]
     Active Substance: LORATADINE
  9. XYREM [Suspect]
     Active Substance: SODIUM OXYBATE
     Indication: NARCOLEPSY
     Dosage: 2.25 G, BID
     Route: 048
     Dates: start: 201505, end: 201506
  10. TYLENOL [Concomitant]
     Active Substance: ACETAMINOPHEN
  11. DIFLUCAN [Concomitant]
     Active Substance: FLUCONAZOLE
  12. CALCIUM [Concomitant]
     Active Substance: CALCIUM
  13. EVAMIST [Concomitant]
     Active Substance: ESTRADIOL
  14. AMBIEN [Concomitant]
     Active Substance: ZOLPIDEM TARTRATE
  15. DIGOXIN. [Concomitant]
     Active Substance: DIGOXIN
  16. PROTONIX [Concomitant]
     Active Substance: PANTOPRAZOLE SODIUM
  17. VITAMIN E [Concomitant]
     Active Substance: .ALPHA.-TOCOPHEROL
  18. ASPIRIN. [Concomitant]
     Active Substance: ASPIRIN
  19. METFORMIN HCL [Concomitant]
     Active Substance: METFORMIN HYDROCHLORIDE
  20. CALADRYL [Concomitant]
     Active Substance: CALAMINE\DIPHENHYDRAMINE HYDROCHLORIDE\FERRIC OXIDE RED\PRAMOXINE HYDROCHLORIDE\ZINC OXIDE
  21. PROLENSA [Concomitant]
     Active Substance: BROMFENAC SODIUM
  22. INVOKANA [Concomitant]
     Active Substance: CANAGLIFLOZIN
  23. NORCO [Concomitant]
     Active Substance: ACETAMINOPHEN\HYDROCODONE BITARTRATE
  24. IMODIUM A-D [Concomitant]
     Active Substance: LOPERAMIDE HYDROCHLORIDE
  25. TUMS [Concomitant]
     Active Substance: CALCIUM CARBONATE

REACTIONS (2)
  - Fungal infection [Unknown]
  - Dermatitis contact [Recovering/Resolving]
